FAERS Safety Report 23646052 (Version 1)
Quarter: 2024Q1

REPORT INFORMATION
  Report Type: Spontaneous
  Country: FR (occurrence: FR)
  Receive Date: 20240319
  Receipt Date: 20240319
  Transmission Date: 20240410
  Serious: Yes (Death)
  Sender: FDA-Public Use
  Company Number: FR-AFSSAPS-RN2023001326

PATIENT
  Age: 88 Year
  Sex: Female

DRUGS (1)
  1. MORPHINE [Suspect]
     Active Substance: MORPHINE
     Indication: Palliative care
     Dosage: 48 MILLIGRAM, 30 MG PER 24 HOURS + 6 BOLUSES OF 3 MG OVER 24 HOURS
     Route: 040
     Dates: start: 20231108, end: 20231109

REACTIONS (3)
  - Incorrect dose administered [Fatal]
  - Coma [Fatal]
  - Overdose [Fatal]

NARRATIVE: CASE EVENT DATE: 20231101
